FAERS Safety Report 15776495 (Version 1)
Quarter: 2018Q4

REPORT INFORMATION
  Report Type: Spontaneous
  Country: US (occurrence: US)
  Receive Date: 20181231
  Receipt Date: 20181231
  Transmission Date: 20190205
  Serious: Yes (Hospitalization, Other)
  Sender: FDA-Public Use
  Company Number: US-BAYER-2018-242855

PATIENT
  Age: 55 Year
  Sex: Female
  Weight: 73 kg

DRUGS (6)
  1. METOPROLOL. [Concomitant]
     Active Substance: METOPROLOL
     Dosage: 100 MG
  2. BAYER LOW DOSE [Concomitant]
     Active Substance: ASPIRIN
     Indication: PROPHYLAXIS
     Dosage: 1 DF, QD
     Dates: start: 2007
  3. CORICIDIN HBP CHEST CONGESTION AND COUGH [Suspect]
     Active Substance: DEXTROMETHORPHAN HYDROBROMIDE\GUAIFENESIN
     Indication: NASOPHARYNGITIS
  4. LISINOPRIL. [Concomitant]
     Active Substance: LISINOPRIL
     Dosage: 20 MG
  5. CORICIDIN HBP CHEST CONGESTION AND COUGH [Suspect]
     Active Substance: DEXTROMETHORPHAN HYDROBROMIDE\GUAIFENESIN
     Indication: HYPERSENSITIVITY
     Dosage: 2 DF
     Route: 048
     Dates: start: 20181219, end: 20181219
  6. ANTI NAUSEA [Suspect]
     Active Substance: DEXTROSE\FRUCTOSE\PHOSPHORIC ACID

REACTIONS (13)
  - Neck pain [Not Recovered/Not Resolved]
  - Cough [Not Recovered/Not Resolved]
  - Head injury [Recovered/Resolved]
  - Dry mouth [Recovering/Resolving]
  - Loss of consciousness [Recovered/Resolved]
  - Feeling hot [Recovered/Resolved]
  - Pruritus [Recovered/Resolved]
  - Diarrhoea [Recovered/Resolved]
  - Headache [Not Recovered/Not Resolved]
  - Pharyngeal oedema [Recovered/Resolved]
  - Vomiting [Recovered/Resolved]
  - Nausea [Recovered/Resolved]
  - Feeling abnormal [Recovered/Resolved]

NARRATIVE: CASE EVENT DATE: 20181219
